FAERS Safety Report 4408585-6 (Version None)
Quarter: 2004Q3

REPORT INFORMATION
  Report Type: 
  Country: None (occurrence: None)
  Receive Date: 20040723
  Receipt Date: 20040712
  Transmission Date: 20050211
  Serious: No
  Sender: FDA-Public Use
  Company Number: 04P-020-0264932-00

PATIENT
  Age: 38 Year
  Sex: Female
  Weight: 66 kg

DRUGS (2)
  1. SYNTHROID [Suspect]
     Indication: HYPOTHYROIDISM
     Dosage: 75 MCG, 1/2 TABLET A DAY , PER ORAL
     Route: 048
     Dates: start: 20040601, end: 20040614
  2. EUGYNON [Concomitant]

REACTIONS (7)
  - ABDOMINAL PAIN [None]
  - BURNING SENSATION [None]
  - DYSPNOEA [None]
  - PRURITUS [None]
  - SKIN DISCOLOURATION [None]
  - THROAT TIGHTNESS [None]
  - URTICARIA [None]
